FAERS Safety Report 8305088-3 (Version None)
Quarter: 2012Q2

REPORT INFORMATION
  Report Type: 
  Country: None (occurrence: None)
  Receive Date: 20120423
  Receipt Date: 20120412
  Transmission Date: 20120825
  Serious: Yes (Other)
  Sender: FDA-Public Use
  Company Number: US-VERTEX PHARMACEUTICALS INC.-AE-2012-005302

PATIENT
  Sex: Male

DRUGS (5)
  1. RIBAVIRIN [Concomitant]
     Dates: start: 20111111
  2. RIBAVIRIN [Concomitant]
     Indication: HEPATITIS C
     Dates: start: 20110802, end: 20111019
  3. PEGINTERFERON [Concomitant]
     Dates: start: 20111111
  4. INCIVEK [Suspect]
     Indication: HEPATITIS C
     Dates: start: 20110802, end: 20111019
  5. PEGINTERFERON [Concomitant]
     Indication: HEPATITIS C
     Dates: start: 20110802, end: 20111019

REACTIONS (1)
  - RASH PUSTULAR [None]
